FAERS Safety Report 7573737-3 (Version None)
Quarter: 2011Q2

REPORT INFORMATION
  Report Type: 
  Country: None (occurrence: None)
  Receive Date: 20110627
  Receipt Date: 20110616
  Transmission Date: 20111010
  Serious: Yes (Hospitalization)
  Sender: FDA-Public Use
  Company Number: AT-ROCHE-783343

PATIENT
  Sex: Female
  Weight: 67 kg

DRUGS (3)
  1. RIBAVIRIN [Suspect]
     Indication: HEPATITIS C
     Route: 048
     Dates: start: 20110407
  2. PEGINTERFERON ALFA-2A [Suspect]
     Indication: HEPATITIS C
     Route: 058
     Dates: start: 20110407
  3. BLINDED TMC435 [Suspect]
     Indication: HEPATITIS C
     Dosage: FREQUENCY: EVERYDAY
     Route: 048
     Dates: start: 20110407

REACTIONS (2)
  - MUSCLE SPASMS [None]
  - SYNCOPE [None]
